FAERS Safety Report 8840785 (Version 2)
Quarter: 2015Q2

REPORT INFORMATION
  Report Type: Report from Study
  Country: US (occurrence: US)
  Receive Date: 20121015
  Receipt Date: 20150623
  Transmission Date: 20150821
  Serious: Yes (Other)
  Sender: FDA-Public Use
  Company Number: US-ROCHE-1140503

PATIENT
  Sex: Female
  Weight: 83.2 kg

DRUGS (20)
  1. NUTROPIN AQ [Suspect]
     Active Substance: SOMATROPIN
     Route: 058
  2. NUTROPIN AQ [Suspect]
     Active Substance: SOMATROPIN
     Route: 058
  3. PREMARIN [Concomitant]
     Active Substance: ESTROGENS, CONJUGATED
     Route: 065
  4. ESTRADIOL. [Concomitant]
     Active Substance: ESTRADIOL
  5. NUTROPIN AQ [Suspect]
     Active Substance: SOMATROPIN
     Route: 058
  6. NUTROPIN AQ [Suspect]
     Active Substance: SOMATROPIN
     Route: 058
  7. NUTROPIN AQ [Suspect]
     Active Substance: SOMATROPIN
     Route: 058
  8. ZOLOFT [Concomitant]
     Active Substance: SERTRALINE HYDROCHLORIDE
     Route: 065
  9. LUVOX [Concomitant]
     Active Substance: FLUVOXAMINE MALEATE
     Route: 065
  10. RISPERDAL [Concomitant]
     Active Substance: RISPERIDONE
     Dosage: 0.5 MG AT AM AND 0.75 MG AT PM
     Route: 048
  11. LUVOX [Concomitant]
     Active Substance: FLUVOXAMINE MALEATE
     Route: 065
  12. PROZAC [Concomitant]
     Active Substance: FLUOXETINE HYDROCHLORIDE
     Route: 065
  13. ZOLOFT [Concomitant]
     Active Substance: SERTRALINE HYDROCHLORIDE
     Route: 048
  14. GABITRIL [Concomitant]
     Active Substance: TIAGABINE HYDROCHLORIDE
  15. NUTROPIN AQ [Suspect]
     Active Substance: SOMATROPIN
     Route: 058
  16. GYNODIOL [Concomitant]
     Active Substance: ESTRADIOL
     Route: 065
  17. NUTROPIN AQ [Suspect]
     Active Substance: SOMATROPIN
     Indication: PRADER-WILLI SYNDROME
     Dosage: 0.68CC
     Route: 058
  18. NUTROPIN AQ [Suspect]
     Active Substance: SOMATROPIN
     Route: 058
  19. ZYPREXA [Concomitant]
     Active Substance: OLANZAPINE
  20. GLUCOPHAGE [Concomitant]
     Active Substance: METFORMIN HYDROCHLORIDE

REACTIONS (13)
  - Headache [Unknown]
  - Acanthosis [Unknown]
  - Fatigue [Unknown]
  - Abdominal pain [Unknown]
  - Scoliosis [Unknown]
  - Abnormal behaviour [Unknown]
  - Anxiety [Unknown]
  - Pain in extremity [Unknown]
  - Facial pain [Unknown]
  - Blood insulin increased [Unknown]
  - Obsessive-compulsive disorder [Unknown]
  - Constipation [Unknown]
  - Tic [Unknown]
